FAERS Safety Report 14545901 (Version 1)
Quarter: 2018Q1

REPORT INFORMATION
  Report Type: Report from Study
  Country: GB (occurrence: GB)
  Receive Date: 20180219
  Receipt Date: 20180219
  Transmission Date: 20180509
  Serious: Yes (Death, Other)
  Sender: FDA-Public Use
  Company Number: GB-AMGEN-GBRSL2017146439

PATIENT
  Age: 83 Year
  Sex: Male

DRUGS (1)
  1. ARANESP [Suspect]
     Active Substance: DARBEPOETIN ALFA
     Indication: PRODUCT USED FOR UNKNOWN INDICATION
     Dosage: 20 MCG, QWK
     Route: 065

REACTIONS (5)
  - Stubbornness [Unknown]
  - Death [Fatal]
  - Intentional product misuse [Unknown]
  - Therapy non-responder [Unknown]
  - Asthenia [Unknown]

NARRATIVE: CASE EVENT DATE: 20180212
